FAERS Safety Report 8557368-4 (Version None)
Quarter: 2012Q3

REPORT INFORMATION
  Report Type: 
  Country: None (occurrence: None)
  Receive Date: 20120801
  Receipt Date: 20120731
  Transmission Date: 20120928
  Serious: Yes (Hospitalization)
  Sender: FDA-Public Use
  Company Number: US-PFIZER INC-2012185952

PATIENT
  Sex: Female
  Weight: 45.351 kg

DRUGS (8)
  1. KLONOPIN [Concomitant]
     Indication: PANIC ATTACK
     Dosage: 2 MG, UNK
  2. PRISTIQ [Suspect]
     Indication: DEPRESSION
     Dosage: 50 MG, DAILY
     Dates: start: 20120501, end: 20120601
  3. EFFEXOR [Suspect]
     Indication: PANIC ATTACK
  4. EFFEXOR [Suspect]
     Indication: DEPRESSION
     Dosage: 175 MG,DAILY
     Dates: start: 20120601, end: 20120701
  5. PRISTIQ [Suspect]
     Indication: AGORAPHOBIA
  6. ZONEGRAN [Concomitant]
     Indication: EPILEPSY
     Dosage: 200 MG, DAILY
  7. EFFEXOR [Suspect]
     Indication: AGORAPHOBIA
  8. PRISTIQ [Suspect]
     Indication: PANIC ATTACK
     Dosage: 100 MG, DAILY
     Dates: start: 20120601, end: 20120601

REACTIONS (4)
  - MENTAL DISORDER [None]
  - SUICIDAL IDEATION [None]
  - DRUG INEFFECTIVE [None]
  - DRUG INTOLERANCE [None]
